FAERS Safety Report 9105808 (Version 1)
Quarter: 2013Q1

REPORT INFORMATION
  Report Type: Spontaneous
  Country: US (occurrence: US)
  Receive Date: 20130220
  Receipt Date: 20130220
  Transmission Date: 20140127
  Serious: No
  Sender: FDA-Public Use
  Company Number: US-PFIZER INC-2013063563

PATIENT
  Age: 66 Year
  Sex: Male
  Weight: 67.1 kg

DRUGS (3)
  1. OXYCODONE HYDROCHLORIDE [Suspect]
     Indication: TRIGEMINAL NEURALGIA
     Dosage: UNK
  2. HYDROCODONE [Suspect]
     Indication: TRIGEMINAL NEURALGIA
     Dosage: UNK
  3. ADVAIR DISKUS [Concomitant]
     Indication: CHRONIC OBSTRUCTIVE PULMONARY DISEASE
     Dosage: 500/50 MG, 2X/DAY

REACTIONS (1)
  - Drug ineffective [Unknown]
